FAERS Safety Report 8515641-X (Version None)
Quarter: 2012Q3

REPORT INFORMATION
  Report Type: 
  Country: None (occurrence: None)
  Receive Date: 20120717
  Receipt Date: 20120712
  Transmission Date: 20120928
  Serious: Yes (Other)
  Sender: FDA-Public Use
  Company Number: PHHY2009CA44549

PATIENT
  Sex: Female

DRUGS (2)
  1. NAPROSYN [Concomitant]
  2. SANDOSTATIN LAR [Suspect]
     Indication: METASTASES TO LIVER
     Dosage: 60 MG, EVERY 4 WEEKS
     Route: 030
     Dates: start: 20060530

REACTIONS (12)
  - ARTHRALGIA [None]
  - INJECTION SITE PAIN [None]
  - PARAESTHESIA [None]
  - PAIN IN EXTREMITY [None]
  - URINE OUTPUT DECREASED [None]
  - HYPOAESTHESIA [None]
  - INJECTION SITE MASS [None]
  - SUBCUTANEOUS HAEMATOMA [None]
  - PAIN [None]
  - DIABETES MELLITUS [None]
  - MUSCLE SPASMS [None]
  - NEURALGIA [None]
